FAERS Safety Report 24557157 (Version 7)
Quarter: 2024Q4

REPORT INFORMATION
  Report Type: Report from Study
  Country: ES (occurrence: ES)
  Receive Date: 20241028
  Receipt Date: 20241216
  Transmission Date: 20250115
  Serious: Yes (Death, Hospitalization, Other)
  Sender: ABBVIE
  Company Number: ES-ABBVIE-5974942

PATIENT
  Age: 61 Year
  Sex: Female

DRUGS (7)
  1. CARBIDOPA\LEVODOPA [Suspect]
     Active Substance: CARBIDOPA\LEVODOPA
     Indication: Parkinson^s disease
     Dosage: 240 MG/ML + 12 MG/ML, LAST ADMIN DATE: OCT 2024, FREQUENCY TEXT: 24 HOURS
     Route: 058
     Dates: start: 20241017
  2. CARBIDOPA\LEVODOPA [Suspect]
     Active Substance: CARBIDOPA\LEVODOPA
     Dosage: INCREASED SPEEDS, 240 MG/ML + 12 MG/ML, FREQUENCY TEXT: 24 HOURS
     Route: 058
     Dates: start: 202410, end: 202410
  3. CARBIDOPA\LEVODOPA [Suspect]
     Active Substance: CARBIDOPA\LEVODOPA
     Dosage: INCREASED SPEEDS: HIGH SPEED 0.50ML/H; BASE SPEED 0.47ML/H; LOW SPEED 0.44ML/H, 240 MG/ML + 12 MG...
     Route: 058
     Dates: start: 202410, end: 202411
  4. CARBIDOPA\LEVODOPA [Suspect]
     Active Substance: CARBIDOPA\LEVODOPA
     Dosage: DOSES INCREASED, 240 MG/ML + 12 MG/ML, LAST ADMIN DATE: 2024, FREQUENCY TEXT: 24 HOURS
     Route: 058
     Dates: start: 202411
  5. CARBIDOPA\LEVODOPA [Suspect]
     Active Substance: CARBIDOPA\LEVODOPA
     Dosage: MINOR DOSAGE ADJUSTMENTS, 240 MG/ML + 12 MG/ML, FREQUENCY TEXT: 24 HOURS
     Route: 058
     Dates: start: 2024, end: 2024
  6. MIDAZOLAM [Concomitant]
     Active Substance: MIDAZOLAM
     Indication: Product used for unknown indication
     Route: 058
     Dates: start: 2024
  7. MORPHINE [Concomitant]
     Active Substance: MORPHINE
     Indication: Product used for unknown indication
     Route: 058
     Dates: start: 2024

REACTIONS (9)
  - Gastric neoplasm [Fatal]
  - Metastases to liver [Unknown]
  - On and off phenomenon [Unknown]
  - Speech disorder [Unknown]
  - Feeling abnormal [Not Recovered/Not Resolved]
  - Freezing phenomenon [Unknown]
  - Gait disturbance [Unknown]
  - Metastases to pancreas [Unknown]
  - Therapeutic product effect incomplete [Unknown]

NARRATIVE: CASE EVENT DATE: 20241001
